FAERS Safety Report 23764603 (Version 6)
Quarter: 2024Q4

REPORT INFORMATION
  Report Type: Spontaneous
  Country: CA (occurrence: CA)
  Receive Date: 20240420
  Receipt Date: 20241003
  Transmission Date: 20250115
  Serious: Yes (Other)
  Sender: CELLTRION
  Company Number: CA-CELLTRION INC.-2023CA005338

PATIENT

DRUGS (22)
  1. INFLECTRA [Suspect]
     Active Substance: INFLIXIMAB-DYYB
     Indication: Crohn^s disease
     Dosage: 5 MG/KG, INDUCTION AT W0,2,6 THEN MAINTENANCE EVERY 8 WEEKS
     Route: 042
     Dates: start: 20230221
  2. INFLECTRA [Suspect]
     Active Substance: INFLIXIMAB-DYYB
     Dosage: 5 MG/KG (400 MG INDUCTION AT WEEK 2)
     Route: 042
     Dates: start: 20230306
  3. INFLECTRA [Suspect]
     Active Substance: INFLIXIMAB-DYYB
     Dosage: 5 MG/KG (400 MG INDUCTION AT WEEK 6)
     Route: 042
     Dates: start: 20230404
  4. INFLECTRA [Suspect]
     Active Substance: INFLIXIMAB-DYYB
     Dosage: 365 MG (5MG/KG, INDUCTION W0,2,6 THEN MAINTENANCE Q8 WEEKS)
     Route: 042
     Dates: start: 20230530, end: 20230530
  5. INFLECTRA [Suspect]
     Active Substance: INFLIXIMAB-DYYB
     Dosage: 720 MG (10 MG/KG), EVERY 4 WEEKS)
     Route: 042
     Dates: start: 20230628
  6. INFLECTRA [Suspect]
     Active Substance: INFLIXIMAB-DYYB
     Dosage: 710 MG, EVERY 4 WEEKS
     Route: 042
     Dates: start: 20230726
  7. INFLECTRA [Suspect]
     Active Substance: INFLIXIMAB-DYYB
     Dosage: 10 MG/KG, EVERY 4 WEEKS
     Route: 042
     Dates: start: 20230920
  8. INFLECTRA [Suspect]
     Active Substance: INFLIXIMAB-DYYB
     Dosage: 700 MG, EVERY 4 WEEKS
     Route: 042
     Dates: start: 20231020
  9. INFLECTRA [Suspect]
     Active Substance: INFLIXIMAB-DYYB
     Dosage: 10 MG/KG, EVERY 4 WEEKS
     Route: 042
     Dates: start: 20231122
  10. INFLECTRA [Suspect]
     Active Substance: INFLIXIMAB-DYYB
     Dosage: 690MG (10 MG/KG), EVERY 4 WEEKS
     Route: 042
     Dates: start: 20231219
  11. INFLECTRA [Suspect]
     Active Substance: INFLIXIMAB-DYYB
     Dosage: 680 MG (10 MG/KG), EVERY 4 WEEKS
     Route: 042
     Dates: start: 20240118
  12. INFLECTRA [Suspect]
     Active Substance: INFLIXIMAB-DYYB
     Dosage: 670 MG (10 MG/KG) AFTER 3 WEEKS AND 6 DAYS, PRESCRIBED EVERY 4 WEEKS
     Route: 042
     Dates: start: 20240214
  13. INFLECTRA [Suspect]
     Active Substance: INFLIXIMAB-DYYB
     Dosage: 670 MG (10 MG/KG) AFTER 4 WEEKS AND 1 DAY, PRESCRIBED EVERY 4 WEEKS
     Route: 042
     Dates: start: 20240314
  14. INFLECTRA [Suspect]
     Active Substance: INFLIXIMAB-DYYB
     Dosage: 640 MG (10 MG/KG), EVERY 4 WEEKS
     Route: 042
     Dates: start: 20240411
  15. INFLECTRA [Suspect]
     Active Substance: INFLIXIMAB-DYYB
     Dosage: 650 MG (10 MG/KG), EVERY 4 WEEKS
     Route: 042
     Dates: start: 20240507
  16. INFLECTRA [Suspect]
     Active Substance: INFLIXIMAB-DYYB
     Dosage: 10 MG/KG, EVERY 4 WEEKS
     Route: 042
     Dates: start: 20240703
  17. INFLECTRA [Suspect]
     Active Substance: INFLIXIMAB-DYYB
     Dosage: 625 MG (10 MG/KG), AFTER 3 WEEKS AND 5 DAYS
     Route: 042
     Dates: start: 20240729
  18. INFLECTRA [Suspect]
     Active Substance: INFLIXIMAB-DYYB
     Dosage: 620 MG (10 MG/KG), EVERY 4 WEEKS
     Route: 042
     Dates: start: 20240826
  19. INFLECTRA [Suspect]
     Active Substance: INFLIXIMAB-DYYB
     Dosage: 630 MG (10MG/KG), EVERY 4 WEEKS
     Route: 042
     Dates: start: 20240924
  20. AZATHIOPRINE [Concomitant]
     Active Substance: AZATHIOPRINE
     Dosage: UNK
  21. AZATHIOPRINE [Concomitant]
     Active Substance: AZATHIOPRINE
     Dosage: 1 DF
     Dates: start: 202203
  22. IMURAN [Concomitant]
     Active Substance: AZATHIOPRINE
     Dosage: UNK

REACTIONS (21)
  - Abdominal distension [Not Recovered/Not Resolved]
  - Nausea [Not Recovered/Not Resolved]
  - Decreased appetite [Not Recovered/Not Resolved]
  - Abdominal pain [Not Recovered/Not Resolved]
  - Drug level decreased [Unknown]
  - Drug ineffective [Unknown]
  - Therapeutic response shortened [Unknown]
  - Drug specific antibody present [Unknown]
  - Condition aggravated [Recovering/Resolving]
  - Arthralgia [Not Recovered/Not Resolved]
  - Abdominal pain upper [Not Recovered/Not Resolved]
  - Constipation [Not Recovered/Not Resolved]
  - Gastrointestinal sounds abnormal [Not Recovered/Not Resolved]
  - Dyspepsia [Recovered/Resolved]
  - Defaecation urgency [Not Recovered/Not Resolved]
  - Vomiting [Recovered/Resolved]
  - Nausea [Recovered/Resolved]
  - Off label use [Unknown]
  - Off label use [Unknown]
  - Intentional product use issue [Unknown]
  - Inappropriate schedule of product administration [Unknown]

NARRATIVE: CASE EVENT DATE: 20230101
